FAERS Safety Report 9773266 (Version 1)
Quarter: 2013Q4

REPORT INFORMATION
  Report Type: Report from Study
  Country: JP (occurrence: JP)
  Receive Date: 20131219
  Receipt Date: 20131219
  Transmission Date: 20140711
  Serious: Yes (Other)
  Sender: FDA-Public Use
  Company Number: JP-GLAXOSMITHKLINE-B0953439A

PATIENT
  Age: 69 Year
  Sex: Female
  Weight: 65 kg

DRUGS (7)
  1. ARIXTRA [Suspect]
     Indication: PULMONARY EMBOLISM
     Route: 042
     Dates: start: 20130108, end: 20130115
  2. WARFARIN POTASSIUM [Concomitant]
     Indication: PULMONARY EMBOLISM
     Route: 048
     Dates: start: 20130108, end: 20130115
  3. DIOVAN [Concomitant]
     Route: 048
  4. ADALAT-CR [Concomitant]
     Route: 048
  5. BAYASPIRIN [Concomitant]
     Route: 048
  6. TAKEPRON [Concomitant]
     Route: 048
  7. XARELTO [Concomitant]
     Indication: PULMONARY EMBOLISM
     Route: 048
     Dates: start: 20130116

REACTIONS (1)
  - Renal impairment [Not Recovered/Not Resolved]
